FAERS Safety Report 8101564-7 (Version None)
Quarter: 2012Q1

REPORT INFORMATION
  Report Type: 
  Country: None (occurrence: None)
  Receive Date: 20120129
  Receipt Date: 20110923
  Transmission Date: 20120608
  Serious: No
  Sender: FDA-Public Use
  Company Number: US-ABBOTT-11P-163-0858585-00

PATIENT
  Sex: Female
  Weight: 74.002 kg

DRUGS (10)
  1. NEXIUM [Concomitant]
     Indication: GASTROOESOPHAGEAL REFLUX DISEASE
  2. HUMIRA [Suspect]
     Indication: RHEUMATOID ARTHRITIS
     Dates: start: 20110401
  3. CRESTOR [Concomitant]
     Indication: BLOOD CHOLESTEROL INCREASED
  4. FOLIC ACID [Concomitant]
     Indication: RHEUMATOID ARTHRITIS
  5. VITAMIN D [Concomitant]
     Indication: BONE DISORDER
  6. ALPRAZOLAM [Concomitant]
     Indication: SLEEP DISORDER
  7. AMITRIPTYLINE HCL [Concomitant]
     Indication: SLEEP DISORDER
  8. BENICAR [Concomitant]
     Indication: HYPERTENSION
  9. ASPIRIN [Concomitant]
     Indication: CARDIOVASCULAR EVENT PROPHYLAXIS
  10. TRILIPIX [Concomitant]
     Indication: BLOOD TRIGLYCERIDES INCREASED

REACTIONS (4)
  - MUSCULOSKELETAL PAIN [None]
  - DRUG INEFFECTIVE [None]
  - ARTHRALGIA [None]
  - PAIN IN EXTREMITY [None]
